FAERS Safety Report 8940508 (Version 1)
Quarter: 2012Q4

REPORT INFORMATION
  Report Type: Report from Study
  Country: NL (occurrence: NL)
  Receive Date: 20121203
  Receipt Date: 20121203
  Transmission Date: 20130627
  Serious: Yes (Hospitalization)
  Sender: FDA-Public Use
  Company Number: NL-ROCHE-1162723

PATIENT
  Age: 61 Year
  Sex: Female

DRUGS (2)
  1. BEVACIZUMAB [Suspect]
     Indication: BREAST CANCER METASTATIC
     Dosage: Date of last dose prior to SAE: 19/Sep/2012
     Route: 042
     Dates: start: 20120530
  2. PACLITAXEL [Suspect]
     Indication: BREAST CANCER METASTATIC
     Dosage: Date of last dose prior to SAE: 05/Sep/2012
     Route: 042

REACTIONS (1)
  - Metastases to meninges [Recovered/Resolved]
